FAERS Safety Report 12257140 (Version 1)
Quarter: 2016Q2

REPORT INFORMATION
  Report Type: Spontaneous
  Country: None (occurrence: None)
  Receive Date: 20160411
  Receipt Date: 20160411
  Transmission Date: 20160815
  Serious: No
  Sender: FDA-Public Use
  Company Number: None

PATIENT
  Age: 60 Year
  Sex: Female
  Weight: 69.5 kg

DRUGS (11)
  1. VITAMIN B12 [Concomitant]
     Active Substance: CYANOCOBALAMIN
  2. VITAMIN D [Concomitant]
     Active Substance: CHOLECALCIFEROL
  3. ACYCLOVIR. [Concomitant]
     Active Substance: ACYCLOVIR
  4. PANTOPRAZOLE [Concomitant]
     Active Substance: PANTOPRAZOLE SODIUM
  5. AMPHETAMINE SALTS XR [Concomitant]
  6. HYDROCORTISONE. [Concomitant]
     Active Substance: HYDROCORTISONE
  7. ZOLPIDEM [Concomitant]
     Active Substance: ZOLPIDEM\ZOLPIDEM TARTRATE
  8. BIOTIN [Concomitant]
     Active Substance: BIOTIN
  9. GADAVIST [Suspect]
     Active Substance: GADOBUTROL
     Indication: SCAN WITH CONTRAST
     Dosage: 7ML, ONE TIME DOSE, VIA IV POWER INJECTOR
     Route: 042
     Dates: start: 20160115
  10. RESTASIS [Concomitant]
     Active Substance: CYCLOSPORINE
  11. TUMERIC [Concomitant]
     Active Substance: TURMERIC

REACTIONS (4)
  - Pain in extremity [None]
  - Pruritus [None]
  - Urticaria [None]
  - Contrast media reaction [None]

NARRATIVE: CASE EVENT DATE: 20160115
